FAERS Safety Report 23588072 (Version 1)
Quarter: 2024Q1

REPORT INFORMATION
  Report Type: Spontaneous
  Country: PL (occurrence: PL)
  Receive Date: 20240301
  Receipt Date: 20240301
  Transmission Date: 20240410
  Serious: Yes (Other)
  Sender: FDA-Public Use
  Company Number: None

PATIENT
  Age: 19 Year
  Sex: Female

DRUGS (3)
  1. NASONEX [Suspect]
     Active Substance: MOMETASONE FUROATE
     Indication: Sinus operation
     Dosage: 4 DOSAGE FORM, QD (2 DOSES OF AEROSOL FOR EACH NOSTRIL)
     Route: 045
     Dates: start: 20191212
  2. SERTRALINE HYDROCHLORIDE [Concomitant]
     Active Substance: SERTRALINE HYDROCHLORIDE
     Indication: Depression
     Dosage: 1 DOSAGE FORM, Q24H
     Route: 048
     Dates: start: 201912
  3. DIVASCAN [Concomitant]
     Indication: Headache
     Dosage: START DATE: SUMMER 2019
     Route: 048
     Dates: start: 2019

REACTIONS (4)
  - Tinnitus [Unknown]
  - Dizziness [Unknown]
  - Disorientation [Unknown]
  - Euphoric mood [Unknown]

NARRATIVE: CASE EVENT DATE: 20191212
